FAERS Safety Report 6314375-X (Version None)
Quarter: 2009Q3

REPORT INFORMATION
  Report Type: 
  Country: None (occurrence: None)
  Receive Date: 20090817
  Receipt Date: 20090817
  Transmission Date: 20100115
  Serious: Yes (Other)
  Sender: FDA-Public Use
  Company Number: None

PATIENT
  Age: 61 Year
  Sex: Female
  Weight: 68.0396 kg

DRUGS (1)
  1. ACTONEL [Suspect]
     Indication: OSTEOPOROSIS
     Dosage: 1 PILL WEEKLY
     Dates: start: 20090711, end: 20090718

REACTIONS (9)
  - DECREASED ACTIVITY [None]
  - ERYTHEMA [None]
  - GINGIVAL PAIN [None]
  - JOINT SWELLING [None]
  - MALAISE [None]
  - MYALGIA [None]
  - NASOPHARYNGITIS [None]
  - NONSPECIFIC REACTION [None]
  - REFUSAL OF TREATMENT BY RELATIVE [None]
